FAERS Safety Report 9297773 (Version 1)
Quarter: 2013Q2

REPORT INFORMATION
  Report Type: Spontaneous
  Country: US (occurrence: US)
  Receive Date: 20130520
  Receipt Date: 20130520
  Transmission Date: 20140414
  Serious: Yes (Other)
  Sender: FDA-Public Use
  Company Number: US-PFIZER INC-2013149945

PATIENT
  Age: 83 Year
  Sex: Male
  Weight: 63.5 kg

DRUGS (2)
  1. CELEBREX [Suspect]
     Indication: ARTHRALGIA
     Dosage: 200 MG, 1X/DAY
     Route: 048
     Dates: end: 201305
  2. MULTIVITAMINS [Suspect]
     Dosage: UNK

REACTIONS (1)
  - Gastric haemorrhage [Recovered/Resolved]
